FAERS Safety Report 16969345 (Version 3)
Quarter: 2020Q1

REPORT INFORMATION
  Report Type: Spontaneous
  Country: US (occurrence: US)
  Receive Date: 20191029
  Receipt Date: 20200203
  Transmission Date: 20200409
  Serious: Yes (Hospitalization)
  Sender: FDA-Public Use
  Company Number: US-INSMED, INC.-US-INS-19-03465

PATIENT
  Age: 70 Year
  Sex: Male

DRUGS (3)
  1. ARIKAYCE [Suspect]
     Active Substance: AMIKACIN
     Indication: MYCOBACTERIAL INFECTION
  2. ARIKAYCE [Suspect]
     Active Substance: AMIKACIN
     Indication: LUNG TRANSPLANT
     Route: 055
     Dates: start: 201910
  3. LAMIRA NEBULIZER SYSTEM [Suspect]
     Active Substance: DEVICE

REACTIONS (7)
  - General physical health deterioration [Unknown]
  - Asthenia [Unknown]
  - Lung disorder [Unknown]
  - Decreased appetite [Unknown]
  - Hypersomnia [Unknown]
  - Fatigue [Unknown]
  - Renal disorder [Unknown]

NARRATIVE: CASE EVENT DATE: 20191017
